FAERS Safety Report 5792211-8 (Version None)
Quarter: 2008Q2

REPORT INFORMATION
  Report Type: 
  Country: None (occurrence: None)
  Receive Date: 20080626
  Receipt Date: 20080609
  Transmission Date: 20081010
  Serious: No
  Sender: FDA-Public Use
  Company Number: US-BOEHRINGER INGELHEIM GMBH, GERMANY-2008-BP-08944BP

PATIENT
  Sex: Male

DRUGS (1)
  1. ZANTAC 150 [Suspect]
     Indication: PEPTIC ULCER
     Route: 048
     Dates: start: 20080608, end: 20080608

REACTIONS (2)
  - DYSPNOEA [None]
  - HYPOAESTHESIA [None]
